FAERS Safety Report 9557592 (Version 1)
Quarter: 2013Q3

REPORT INFORMATION
  Report Type: Report from Study
  Country: US (occurrence: US)
  Receive Date: 20130926
  Receipt Date: 20130926
  Transmission Date: 20140515
  Serious: Yes (Hospitalization, Other)
  Sender: FDA-Public Use
  Company Number: US-VIIV HEALTHCARE LIMITED-A1036630B

PATIENT
  Age: 31 Year
  Sex: Male
  Weight: 94.2 kg

DRUGS (3)
  1. EPZICOM [Suspect]
     Indication: HEPATITIS B
     Route: 048
     Dates: start: 20130706, end: 20130710
  2. SOFOSBUVIR [Suspect]
     Indication: HEPATITIS B
     Dosage: 400MG PER DAY
     Route: 048
     Dates: start: 20130626, end: 20130710
  3. LEDIPASVIR [Suspect]
     Indication: HEPATITIS B
     Dosage: 90MG PER DAY
     Route: 048
     Dates: start: 20130626, end: 20130710

REACTIONS (1)
  - Cholecystitis [Recovered/Resolved]
